FAERS Safety Report 10375122 (Version 1)
Quarter: 2014Q1

REPORT INFORMATION
  Report Type: Spontaneous
  Country: US (occurrence: None)
  Receive Date: 20140306
  Receipt Date: 20140306
  Transmission Date: 20141002
  Serious: Yes (Hospitalization)
  Sender: FDA-Public Use
  Company Number: 163-21880-12114163

PATIENT
  Age: 71 Year
  Sex: Male

DRUGS (3)
  1. REVLIMID [Suspect]
     Indication: MYELODYSPLASTIC SYNDROME
     Dosage: 28 IN 28 D, PO TEMPORARILY INTERRUPTED
     Route: 048
     Dates: start: 20121106
  2. ALLOPURINOL [Concomitant]
  3. PREDNISONE [Concomitant]

REACTIONS (2)
  - Renal failure [None]
  - Local swelling [None]
